FAERS Safety Report 6764429-9 (Version None)
Quarter: 2010Q2

REPORT INFORMATION
  Report Type: 
  Country: None (occurrence: None)
  Receive Date: 20100609
  Receipt Date: 20100503
  Transmission Date: 20101027
  Serious: No
  Sender: FDA-Public Use
  Company Number: 2010010451

PATIENT
  Age: 6 Year
  Sex: Female
  Weight: 24.4942 kg

DRUGS (3)
  1. CHILDREN'S ZYRTEC ALLERGY [Suspect]
     Indication: HYPERSENSITIVITY
     Dosage: RECOMMENDED DOSE AS NEEDED,ORAL
     Route: 048
  2. IBUPROFEN [Concomitant]
  3. PARACETAMOL (PARACETAMOL) [Concomitant]

REACTIONS (2)
  - DRUG INEFFECTIVE [None]
  - PRODUCT MEASURED POTENCY ISSUE [None]
